FAERS Safety Report 6373597-2 (Version None)
Quarter: 2009Q3

REPORT INFORMATION
  Report Type: 
  Country: None (occurrence: None)
  Receive Date: 20090921
  Receipt Date: 20090727
  Transmission Date: 20100115
  Serious: Yes (Other)
  Sender: FDA-Public Use
  Company Number: 84481

PATIENT
  Sex: Female

DRUGS (1)
  1. METHOTREXATE [Suspect]

REACTIONS (1)
  - MEDICATION ERROR [None]
